FAERS Safety Report 19647610 (Version 6)
Quarter: 2021Q4

REPORT INFORMATION
  Report Type: Report from Study
  Country: HK (occurrence: HK)
  Receive Date: 20210802
  Receipt Date: 20211125
  Transmission Date: 20220304
  Serious: Yes (Hospitalization)
  Sender: FDA-Public Use
  Company Number: HK-PFIZER INC-202100912324

PATIENT
  Age: 45 Year
  Sex: Male
  Weight: 76.6 kg

DRUGS (2)
  1. AXITINIB [Suspect]
     Active Substance: AXITINIB
     Indication: Nasopharyngeal cancer metastatic
     Dosage: 5 MG, CYCLIC (TWICE DAILY DAYS 1-28)
     Route: 048
     Dates: start: 20210716
  2. AVELUMAB [Suspect]
     Active Substance: AVELUMAB
     Indication: Nasopharyngeal cancer metastatic
     Dosage: 10MG/KG (760 MG), CYCLIC (Q2W)
     Route: 042
     Dates: start: 20210716, end: 20210716

REACTIONS (1)
  - Lower respiratory tract infection [Recovered/Resolved]

NARRATIVE: CASE EVENT DATE: 20210718
